FAERS Safety Report 21652514 (Version 1)
Quarter: 2022Q4

REPORT INFORMATION
  Report Type: Spontaneous
  Country: JP (occurrence: JP)
  Receive Date: 20221128
  Receipt Date: 20221128
  Transmission Date: 20230113
  Serious: Yes (Other)
  Sender: FDA-Public Use
  Company Number: JP-BAYER-2022A163781

PATIENT
  Sex: Male

DRUGS (1)
  1. NUBEQA [Suspect]
     Active Substance: DAROLUTAMIDE
     Dosage: UNSPECIFIED DOSE, TWICE, IN THE MORNING AND EVENING
     Route: 048
     Dates: start: 202210

REACTIONS (2)
  - Haematochezia [None]
  - Nausea [None]
